FAERS Safety Report 7591615-0 (Version None)
Quarter: 2011Q3

REPORT INFORMATION
  Report Type: 
  Country: None (occurrence: None)
  Receive Date: 20110706
  Receipt Date: 20110624
  Transmission Date: 20111222
  Serious: Yes (Hospitalization)
  Sender: FDA-Public Use
  Company Number: US-BAYER-201039523NA

PATIENT
  Age: 24 Year
  Sex: Female
  Weight: 47.727 kg

DRUGS (10)
  1. BENADRYL [Concomitant]
     Indication: PRODUCT USED FOR UNKNOWN INDICATION
     Route: 042
     Dates: start: 20071214, end: 20071214
  2. ADVIL LIQUI-GELS [Concomitant]
     Indication: PRODUCT USED FOR UNKNOWN INDICATION
  3. INFED [Concomitant]
     Indication: PRODUCT USED FOR UNKNOWN INDICATION
     Route: 042
     Dates: start: 20071214, end: 20071214
  4. SOLU-MEDROL [Concomitant]
     Indication: PRODUCT USED FOR UNKNOWN INDICATION
     Route: 042
     Dates: start: 20071214, end: 20071214
  5. ZITHROMAX [Concomitant]
     Dosage: UNK
     Dates: start: 20071120
  6. VALIUM [Concomitant]
     Indication: INSOMNIA
     Dosage: UNK
     Route: 048
     Dates: start: 20071212
  7. ANTITHROMBOTIC AGENTS [Concomitant]
  8. YAZ [Suspect]
     Indication: ORAL CONTRACEPTION
     Dosage: UNK UNK, UNK
     Route: 048
     Dates: start: 20070401, end: 20070801
  9. YAZ [Suspect]
     Indication: MENSTRUAL CYCLE MANAGEMENT
  10. COUGH AND COLD PREPARATIONS [Concomitant]
     Dosage: UNK
     Dates: start: 20071120

REACTIONS (6)
  - PULMONARY EMBOLISM [None]
  - ASTHENIA [None]
  - MENTAL DISORDER [None]
  - DYSPNOEA [None]
  - CHEST PAIN [None]
  - DIZZINESS [None]
